FAERS Safety Report 4761008-X (Version None)
Quarter: 2005Q3

REPORT INFORMATION
  Report Type: 
  Country: None (occurrence: None)
  Receive Date: 20050901
  Receipt Date: 20050829
  Transmission Date: 20060218
  Serious: Yes (Hospitalization)
  Sender: FDA-Public Use
  Company Number: 142976USA

PATIENT
  Sex: Female
  Weight: 77.1115 kg

DRUGS (1)
  1. COPAXONE [Suspect]
     Indication: MULTIPLE SCLEROSIS
     Dates: start: 20030501, end: 20040101

REACTIONS (1)
  - LOSS OF CONSCIOUSNESS [None]
